FAERS Safety Report 5474105-0 (Version None)
Quarter: 2007Q3

REPORT INFORMATION
  Report Type: 
  Country: None (occurrence: None)
  Receive Date: 20070928
  Receipt Date: 20070928
  Transmission Date: 20080115
  Serious: Yes (Congenital Anomaly, Other)
  Sender: FDA-Public Use
  Company Number: None

PATIENT
  Age: 2 Week
  Sex: Male

DRUGS (1)
  1. ONDANSETRON [Suspect]
     Dosage: 4-8 MG Q 4 H PO
     Route: 048

REACTIONS (5)
  - COLITIS [None]
  - DRUG EXPOSURE DURING PREGNANCY [None]
  - FEEDING DISORDER NEONATAL [None]
  - HAEMORRHAGE [None]
  - NEONATAL DISORDER [None]
